FAERS Safety Report 13363953 (Version 1)
Quarter: 2017Q1

REPORT INFORMATION
  Report Type: Spontaneous
  Country: SI (occurrence: SI)
  Receive Date: 20170323
  Receipt Date: 20170323
  Transmission Date: 20170429
  Serious: Yes (Hospitalization)
  Sender: FDA-Public Use
  Company Number: SI-FRESENIUS KABI-FK201702326

PATIENT
  Age: 2 Year
  Sex: Female

DRUGS (5)
  1. GLUCOSE W/POTASSIUM CHLORIDE/SODIUM CHLORIDE [Concomitant]
     Indication: NUTRITIONAL SUPPLEMENTATION
     Route: 042
     Dates: start: 20150829, end: 20150830
  2. DOXORUBICIN TEVA [Suspect]
     Active Substance: DOXORUBICIN
     Indication: CHEMOTHERAPY
     Route: 042
     Dates: start: 20150829, end: 20150829
  3. TOPOTECAN HYDROCHLORIDE FOR INJECTION [Suspect]
     Active Substance: TOPOTECAN HYDROCHLORIDE
     Indication: CHEMOTHERAPY
     Route: 040
     Dates: start: 20150829, end: 20150829
  4. SETRONON [Concomitant]
     Active Substance: ONDANSETRON HYDROCHLORIDE
     Indication: NAUSEA
     Route: 040
     Dates: start: 20150829, end: 20150829
  5. VINCRISTINE [Concomitant]
     Active Substance: VINCRISTINE
     Indication: CHEMOTHERAPY
     Route: 042
     Dates: start: 20150829, end: 20151030

REACTIONS (1)
  - Urticaria [Unknown]

NARRATIVE: CASE EVENT DATE: 20150829
